FAERS Safety Report 10892074 (Version 1)
Quarter: 2015Q1

REPORT INFORMATION
  Report Type: Spontaneous
  Country: US (occurrence: US)
  Receive Date: 20150306
  Receipt Date: 20150306
  Transmission Date: 20150721
  Serious: Yes (Other)
  Sender: FDA-Public Use
  Company Number: US-JNJFOC-20150216740

PATIENT
  Sex: Male
  Weight: 94.8 kg

DRUGS (1)
  1. INVEGA SUSTENNA [Suspect]
     Active Substance: PALIPERIDONE PALMITATE
     Indication: SCHIZOPHRENIA
     Dosage: AROUND 160 MG
     Route: 030
     Dates: start: 2012, end: 2012

REACTIONS (6)
  - Injection site haemorrhage [Unknown]
  - Hypersensitivity [Unknown]
  - Injection site bruising [Unknown]
  - Therapy cessation [Unknown]
  - Neuroleptic malignant syndrome [Unknown]
  - Insomnia [Unknown]

NARRATIVE: CASE EVENT DATE: 2012
